FAERS Safety Report 6921429-3 (Version None)
Quarter: 2010Q3

REPORT INFORMATION
  Report Type: 
  Country: None (occurrence: None)
  Receive Date: 20100812
  Receipt Date: 20100804
  Transmission Date: 20110219
  Serious: Yes (Death)
  Sender: FDA-Public Use
  Company Number: GXKR2010US06313

PATIENT
  Age: 27 Year
  Sex: Female

DRUGS (9)
  1. AZITHROMYCIN (NGX) [Suspect]
     Indication: UPPER RESPIRATORY TRACT INFECTION
     Route: 065
  2. TIZANIDINE (NGX) [Interacting]
     Route: 065
  3. BUPROPION HCL [Concomitant]
     Route: 065
  4. TRAZODONE HCL [Concomitant]
     Route: 065
  5. ZOLPIDEM [Concomitant]
     Route: 065
  6. FEXOFENADINE [Concomitant]
     Route: 065
  7. TRAMADOL HYDROCHLORIDE [Concomitant]
     Route: 065
  8. IBUPROFEN [Concomitant]
     Route: 065
  9. SUMATRIPTAN [Concomitant]
     Route: 065

REACTIONS (9)
  - BRAIN INJURY [None]
  - CARDIAC ARREST [None]
  - CARDIOVERSION [None]
  - COMA [None]
  - DRUG INTERACTION [None]
  - LOSS OF CONSCIOUSNESS [None]
  - RESUSCITATION [None]
  - TORSADE DE POINTES [None]
  - VENTRICULAR FIBRILLATION [None]
